FAERS Safety Report 17279852 (Version 1)
Quarter: 2020Q1

REPORT INFORMATION
  Report Type: Spontaneous
  Country: FR (occurrence: FR)
  Receive Date: 20200116
  Receipt Date: 20200116
  Transmission Date: 20200409
  Serious: Yes (Death, Other)
  Sender: FDA-Public Use
  Company Number: FR-CELLTRION INC.-2020FR017746

PATIENT

DRUGS (4)
  1. IMMUNE GLOBULIN (IMMUNOGLOBULINS NOS) [Suspect]
     Active Substance: IMMUNE GLOBULIN NOS
     Indication: HEART TRANSPLANT
     Route: 065
  2. RITUXIMAB (UNKNOWN) [Suspect]
     Active Substance: RITUXIMAB
     Indication: HEART TRANSPLANT REJECTION
     Dosage: 375 MG/M2 AT WEEKS 0,1,2 AND 3
     Route: 041
  3. CICLOSPORIN [Suspect]
     Active Substance: CYCLOSPORINE
     Indication: HEART TRANSPLANT
     Route: 065
  4. MYCOPHENOLATE MOFETIL. [Suspect]
     Active Substance: MYCOPHENOLATE MOFETIL
     Indication: HEART TRANSPLANT
     Route: 065

REACTIONS (5)
  - Product use in unapproved indication [Fatal]
  - Human herpesvirus 8 infection [Fatal]
  - Lymphadenopathy [Fatal]
  - Kaposi^s sarcoma [Fatal]
  - Lymphopenia [Unknown]
